FAERS Safety Report 5371853-8 (Version None)
Quarter: 2007Q2

REPORT INFORMATION
  Report Type: 
  Country: None (occurrence: None)
  Receive Date: 20070627
  Receipt Date: 20070621
  Transmission Date: 20071010
  Serious: Yes (Other)
  Sender: FDA-Public Use
  Company Number: US-JNJFOC-20070605210

PATIENT
  Age: 69 Year
  Sex: Female
  Weight: 58.97 kg

DRUGS (5)
  1. PEPCID COMPLETE [Suspect]
     Route: 048
  2. PEPCID COMPLETE [Suspect]
     Indication: DYSPEPSIA
     Dosage: 1-2 AS NEEDED
     Route: 048
  3. MOBIC [Concomitant]
  4. SYNTHROID [Concomitant]
  5. ESTRADIOL [Concomitant]

REACTIONS (1)
  - HYPERTENSION [None]
